FAERS Safety Report 6252088-3 (Version None)
Quarter: 2009Q2

REPORT INFORMATION
  Report Type: 
  Country: None (occurrence: None)
  Receive Date: 20090630
  Receipt Date: 20050414
  Transmission Date: 20091009
  Serious: Yes (Hospitalization)
  Sender: FDA-Public Use
  Company Number: US-ROCHE-638888

PATIENT
  Sex: Female

DRUGS (8)
  1. ENFUVIRTIDE [Suspect]
     Indication: HIV INFECTION
     Route: 065
     Dates: start: 20040327, end: 20060202
  2. NORVIR [Concomitant]
     Dosage: FREQUENCY: DAILY (QD)
     Dates: start: 20040327, end: 20040728
  3. REYATAZ [Concomitant]
     Dosage: FREQUENCY: DAILY (QD)
     Dates: start: 20040327, end: 20060202
  4. VIDEX EC [Concomitant]
     Dosage: FREQUENCY: DAILY (QD)
     Dates: start: 20040327, end: 20040401
  5. VIDEX EC [Concomitant]
     Dosage: FREQUENCY: DAILY (QD)
     Dates: start: 20041117, end: 20050101
  6. VIREAD [Concomitant]
     Dosage: FREQUENCY: DAILY (QD)
     Dates: start: 20040327, end: 20050414
  7. KALETRA [Concomitant]
     Dosage: DOSE: 3 TABLETS, FREQUENCY: DAILY (QD)
     Dates: start: 20040728, end: 20060202
  8. DAPSONE [Concomitant]
     Dosage: FREQUENCY: DAILY (QD)
     Dates: start: 20040507, end: 20060101

REACTIONS (3)
  - GASTROINTESTINAL DISORDER [None]
  - PANCREATITIS ACUTE [None]
  - RECTAL HAEMORRHAGE [None]
